FAERS Safety Report 24981678 (Version 1)
Quarter: 2025Q1

REPORT INFORMATION
  Report Type: Spontaneous
  Country: US (occurrence: US)
  Receive Date: 20250218
  Receipt Date: 20250218
  Transmission Date: 20250408
  Serious: No
  Sender: BAYER HEALTHCARE PHARMACEUTICALS INC.
  Company Number: US-BAYER-2025A021883

PATIENT
  Age: 35 Year
  Sex: Female

DRUGS (3)
  1. MIRENA [Suspect]
     Active Substance: LEVONORGESTREL
     Indication: Intrauterine contraception
     Dosage: 20?G/DAY
     Route: 015
     Dates: start: 201811
  2. ACTHAR [Concomitant]
     Active Substance: CORTICOTROPIN
     Indication: Rheumatoid arthritis
     Dates: start: 20250127
  3. ACTEMRA [Concomitant]
     Active Substance: TOCILIZUMAB

REACTIONS (3)
  - Nightmare [None]
  - Sleep disorder [None]
  - Influenza like illness [None]

NARRATIVE: CASE EVENT DATE: 20250127
